FAERS Safety Report 7097122-6 (Version None)
Quarter: 2010Q4

REPORT INFORMATION
  Report Type: 
  Country: None (occurrence: None)
  Receive Date: 20101111
  Receipt Date: 20101027
  Transmission Date: 20110411
  Serious: Yes (Other)
  Sender: FDA-Public Use
  Company Number: IT-CUBIST-2010S1001576

PATIENT
  Age: 71 Year
  Sex: Female

DRUGS (3)
  1. CUBICIN [Suspect]
     Indication: STAPHYLOCOCCAL INFECTION
     Route: 042
  2. CUBICIN [Suspect]
  3. LINEZOLID [Concomitant]
     Indication: STAPHYLOCOCCAL INFECTION
     Route: 042

REACTIONS (2)
  - ENDOCARDITIS [None]
  - RENAL FAILURE [None]
